FAERS Safety Report 25024750 (Version 1)
Quarter: 2025Q1

REPORT INFORMATION
  Report Type: Spontaneous
  Country: US (occurrence: US)
  Receive Date: 20250228
  Receipt Date: 20250228
  Transmission Date: 20250409
  Serious: No
  Sender: BAUSCH AND LOMB
  Company Number: US-BAUSCHBL-2025BNL002913

PATIENT
  Age: 80 Year
  Sex: Female

DRUGS (5)
  1. XIIDRA [Suspect]
     Active Substance: LIFITEGRAST
     Indication: Dry eye
     Route: 047
     Dates: start: 20250213
  2. XIIDRA [Suspect]
     Active Substance: LIFITEGRAST
     Indication: Product used for unknown indication
  3. SYSTANE COMPLETE [Concomitant]
     Active Substance: PROPYLENE GLYCOL
     Indication: Product used for unknown indication
  4. SYSTANE NIGHTTIME [Concomitant]
     Active Substance: MINERAL OIL\PETROLATUM
     Indication: Product used for unknown indication
  5. SYSTANE NIGHTTIME DROPS [Concomitant]
     Indication: Product used for unknown indication

REACTIONS (7)
  - Eyelid margin crusting [Unknown]
  - Eyelid disorder [Unknown]
  - Eye discharge [Unknown]
  - Eye irritation [Recovering/Resolving]
  - Lacrimation increased [Unknown]
  - Vision blurred [Unknown]
  - Therapeutic response unexpected [Unknown]
